FAERS Safety Report 4769118-8 (Version None)
Quarter: 2005Q3

REPORT INFORMATION
  Report Type: 
  Country: None (occurrence: None)
  Receive Date: 20050912
  Receipt Date: 20050524
  Transmission Date: 20060218
  Serious: Yes (Hospitalization)
  Sender: FDA-Public Use
  Company Number: 2005-01080

PATIENT
  Age: 73 Year

DRUGS (2)
  1. VELCADE [Suspect]
     Indication: MULTIPLE MYELOMA
     Dosage: 2.50 MG
     Dates: start: 20050509, end: 20050509
  2. ZOMETA [Concomitant]

REACTIONS (5)
  - BLOOD CREATININE INCREASED [None]
  - BLOOD UREA INCREASED [None]
  - DISEASE PROGRESSION [None]
  - LABORATORY TEST ABNORMAL [None]
  - RENAL IMPAIRMENT [None]
